FAERS Safety Report 12302134 (Version 1)
Quarter: 2016Q2

REPORT INFORMATION
  Report Type: Spontaneous
  Country: US (occurrence: US)
  Receive Date: 20160425
  Receipt Date: 20160425
  Transmission Date: 20160815
  Serious: Yes (Other)
  Sender: FDA-Public Use
  Company Number: US-BAYER-2016-076547

PATIENT
  Age: 63 Year
  Sex: Male

DRUGS (2)
  1. ALEVE [Interacting]
     Active Substance: NAPROXEN SODIUM
     Dosage: UNK
  2. BAYER LOW DOSE [Suspect]
     Active Substance: ASPIRIN
     Dosage: UNK UNK, QD

REACTIONS (5)
  - Gastric haemorrhage [None]
  - Labelled drug-drug interaction medication error [None]
  - Gastrointestinal ulcer [None]
  - Gastrointestinal haemorrhage [None]
  - Product use issue [None]

NARRATIVE: CASE EVENT DATE: 20160221
